FAERS Safety Report 8202341-9 (Version None)
Quarter: 2012Q1

REPORT INFORMATION
  Report Type: 
  Country: None (occurrence: None)
  Receive Date: 20120312
  Receipt Date: 20110504
  Transmission Date: 20120608
  Serious: Yes (Hospitalization)
  Sender: FDA-Public Use
  Company Number: US-ABBOTT-11P-163-0720311-00

PATIENT
  Age: 26 Year
  Sex: Female
  Weight: 72.1 kg

DRUGS (4)
  1. BLINDED THERAPY [Suspect]
     Indication: BIPOLAR I DISORDER
     Route: 048
     Dates: start: 20110219, end: 20110226
  2. DEPAKOTE [Suspect]
     Indication: BIPOLAR I DISORDER
     Route: 048
     Dates: start: 20110204, end: 20110227
  3. DEPAKOTE [Suspect]
     Dosage: DAILY
     Route: 048
     Dates: start: 20101217, end: 20110203
  4. DEPAKOTE [Suspect]
     Dosage: TWICE A DAY

REACTIONS (2)
  - INTENTIONAL OVERDOSE [None]
  - SUICIDAL IDEATION [None]
